FAERS Safety Report 5161359-3 (Version None)
Quarter: 2006Q4

REPORT INFORMATION
  Report Type: 
  Country: None (occurrence: None)
  Receive Date: 20061121
  Receipt Date: 20061108
  Transmission Date: 20070319
  Serious: Yes (Hospitalization, Other)
  Sender: FDA-Public Use
  Company Number: 2006139902

PATIENT
  Age: 15 Year
  Sex: Male
  Weight: 110 kg

DRUGS (2)
  1. SOLU-MEDROL [Suspect]
     Indication: LEUKOENCEPHALOMYELITIS
     Dosage: 1 GRAM INTRAVENOUS
     Route: 042
  2. HEPARIN [Concomitant]

REACTIONS (1)
  - PULMONARY EMBOLISM [None]
